FAERS Safety Report 25231576 (Version 1)
Quarter: 2025Q2

REPORT INFORMATION
  Report Type: Spontaneous
  Country: US (occurrence: US)
  Receive Date: 20250423
  Receipt Date: 20250423
  Transmission Date: 20250716
  Serious: Yes (Other)
  Sender: AMGEN
  Company Number: US-AMGEN-USASP2025075928

PATIENT

DRUGS (13)
  1. ADALIMUMAB [Suspect]
     Active Substance: ADALIMUMAB
     Indication: Rheumatoid arthritis
     Route: 065
  2. ADALIMUMAB [Suspect]
     Active Substance: ADALIMUMAB
     Indication: Sarcoidosis
  3. ADALIMUMAB [Suspect]
     Active Substance: ADALIMUMAB
     Indication: Psoriasis
  4. ADALIMUMAB [Suspect]
     Active Substance: ADALIMUMAB
     Indication: Sjogren^s syndrome
  5. ADALIMUMAB [Suspect]
     Active Substance: ADALIMUMAB
     Indication: Systemic lupus erythematosus
  6. ADALIMUMAB [Suspect]
     Active Substance: ADALIMUMAB
     Indication: Myelin oligodendrocyte glycoprotein antibody-associated disease
  7. INFLIXIMAB [Suspect]
     Active Substance: INFLIXIMAB
     Indication: Rheumatoid arthritis
     Route: 065
  8. INFLIXIMAB [Suspect]
     Active Substance: INFLIXIMAB
     Indication: Sarcoidosis
  9. INFLIXIMAB [Suspect]
     Active Substance: INFLIXIMAB
     Indication: Psoriasis
  10. INFLIXIMAB [Suspect]
     Active Substance: INFLIXIMAB
     Indication: Sjogren^s syndrome
  11. INFLIXIMAB [Suspect]
     Active Substance: INFLIXIMAB
     Indication: Systemic lupus erythematosus
  12. INFLIXIMAB [Suspect]
     Active Substance: INFLIXIMAB
     Indication: Myelin oligodendrocyte glycoprotein antibody-associated disease
  13. PREDNISONE [Suspect]
     Active Substance: PREDNISONE
     Indication: Immunosuppressant drug therapy
     Dosage: UNK, QD HIGH DOSE AND LOWE DOSE
     Route: 065

REACTIONS (3)
  - Post procedural haemorrhage [Unknown]
  - Postoperative wound infection [Unknown]
  - Abdominal infection [Unknown]
